FAERS Safety Report 15996224 (Version 1)
Quarter: 2019Q1

REPORT INFORMATION
  Report Type: Spontaneous
  Country: US (occurrence: US)
  Receive Date: 20190222
  Receipt Date: 20190222
  Transmission Date: 20190418
  Serious: No
  Sender: FDA-Public Use
  Company Number: US-JUBILANT CADISTA PHARMACEUTICALS-2018JUB00526

PATIENT
  Sex: Female
  Weight: 87.53 kg

DRUGS (7)
  1. LOSARTAN POTASSIUM AND HYDROCHLOROTHIAZIDE [Suspect]
     Active Substance: HYDROCHLOROTHIAZIDE\LOSARTAN POTASSIUM
     Indication: HYPERTENSION
     Dosage: 1 TABLETS, 1X/DAY
  2. BYSTOLIC [Concomitant]
     Active Substance: NEBIVOLOL HYDROCHLORIDE
     Dosage: 10 MG, 1X/DAY
  3. ZETIA [Concomitant]
     Active Substance: EZETIMIBE
     Indication: BLOOD CHOLESTEROL INCREASED
     Dosage: UNK, 1X/WEEK
  4. LEVOTHYROXINE. [Concomitant]
     Active Substance: LEVOTHYROXINE
     Indication: HYPOTHYROIDISM
     Dosage: 88 ?G, 1X/DAY
  5. ROSUVASTATIN. [Concomitant]
     Active Substance: ROSUVASTATIN
     Indication: BLOOD CHOLESTEROL INCREASED
     Dosage: 5 MG, 2X/WEEK
  6. VALSARTAN. [Suspect]
     Active Substance: VALSARTAN
     Indication: HYPERTENSION
     Dosage: UNK UNK, 1X/DAY
     Route: 048
  7. TYLENOL [Concomitant]
     Active Substance: ACETAMINOPHEN
     Dosage: UNK, AS NEEDED

REACTIONS (5)
  - Hypertension [Recovering/Resolving]
  - Cystitis [Recovered/Resolved]
  - Blood urine [Not Recovered/Not Resolved]
  - Micturition urgency [Unknown]
  - Back disorder [Unknown]
